FAERS Safety Report 14589672 (Version 2)
Quarter: 2018Q2

REPORT INFORMATION
  Report Type: Spontaneous
  Country: US (occurrence: US)
  Receive Date: 20180302
  Receipt Date: 20180406
  Transmission Date: 20180711
  Serious: Yes (Life-Threatening, Hospitalization)
  Sender: FDA-Public Use
  Company Number: US-CLINIGEN GROUP PLC/ CLINIGEN HEALTHCARE LTD-US-CLGN-18-00063

PATIENT
  Age: 24 Year
  Sex: Male
  Weight: 52.27 kg

DRUGS (2)
  1. FOSCARNET SODIUM. [Suspect]
     Active Substance: FOSCARNET SODIUM
     Indication: VIRAEMIA
     Route: 042
     Dates: start: 20170812, end: 20170902
  2. FOSCARNET SODIUM. [Suspect]
     Active Substance: FOSCARNET SODIUM
     Indication: CYTOMEGALOVIRUS CHORIORETINITIS
     Route: 042
     Dates: start: 20170723, end: 20170812

REACTIONS (7)
  - Diarrhoea [Unknown]
  - Renal mass [Recovered/Resolved]
  - Acute kidney injury [Recovered/Resolved]
  - Hypokalaemia [Recovered/Resolved]
  - Off label use [Unknown]
  - Condition aggravated [Recovered/Resolved]
  - Pneumonia cryptococcal [Recovering/Resolving]

NARRATIVE: CASE EVENT DATE: 20170822
